FAERS Safety Report 8455815-X (Version None)
Quarter: 2012Q2

REPORT INFORMATION
  Report Type: 
  Country: None (occurrence: None)
  Receive Date: 20120621
  Receipt Date: 20120612
  Transmission Date: 20120825
  Serious: Yes (Other)
  Sender: FDA-Public Use
  Company Number: US-ASTRAZENECA-2011SE62358

PATIENT
  Age: 51 Year
  Sex: Female
  Weight: 74.4 kg

DRUGS (6)
  1. ATENOLOL [Concomitant]
     Indication: HYPERTENSION
     Dosage: TWO TIMES A DAY
  2. SEROQUEL XR [Suspect]
     Indication: NERVOUSNESS
     Route: 048
  3. AMBIEN [Concomitant]
     Indication: SLEEP DISORDER
     Dates: start: 20080101
  4. SEROQUEL XR [Suspect]
     Indication: SLEEP DISORDER
     Route: 048
  5. XANAX [Concomitant]
     Indication: NERVOUSNESS
  6. PERCOCET [Concomitant]
     Indication: ANALGESIC THERAPY
     Dosage: 5/325 MG, THREE TIMES A DAY
     Dates: start: 20100101

REACTIONS (9)
  - HAEMORRHAGE [None]
  - STRESS [None]
  - DRUG DOSE OMISSION [None]
  - WITHDRAWAL SYNDROME [None]
  - RESTLESSNESS [None]
  - OFF LABEL USE [None]
  - PRURITUS [None]
  - AMNESIA [None]
  - LEARNING DISORDER [None]
